FAERS Safety Report 6135988-4 (Version None)
Quarter: 2009Q1

REPORT INFORMATION
  Report Type: 
  Country: None (occurrence: None)
  Receive Date: 20090329
  Receipt Date: 20081208
  Transmission Date: 20090719
  Serious: No
  Sender: FDA-Public Use
  Company Number: US-BAUSCH-2008BL005162

PATIENT
  Age: 73 Year
  Sex: Female
  Weight: 52 kg

DRUGS (8)
  1. LOTEMAX [Suspect]
     Indication: KERATOCONJUNCTIVITIS SICCA
     Route: 047
     Dates: start: 20081121
  2. LOTEMAX [Suspect]
     Indication: OFF LABEL USE
     Route: 047
     Dates: start: 20081121
  3. LOTEMAX [Suspect]
     Route: 047
     Dates: start: 20081121
  4. LOTEMAX [Suspect]
     Indication: EYE PAIN
     Route: 047
     Dates: start: 20081121
  5. TRAZODONE HCL [Concomitant]
     Indication: SLEEP DISORDER
  6. MULTIPLE VITAMINS [Concomitant]
     Indication: VITAMIN SUPPLEMENTATION
  7. CALCIUM [Concomitant]
     Indication: MINERAL SUPPLEMENTATION
  8. MAGNESIUM SULFATE [Concomitant]
     Indication: MINERAL SUPPLEMENTATION

REACTIONS (1)
  - DRUG INEFFECTIVE [None]
